FAERS Safety Report 8255832-9 (Version None)
Quarter: 2012Q2

REPORT INFORMATION
  Report Type: 
  Country: None (occurrence: None)
  Receive Date: 20120403
  Receipt Date: 20120327
  Transmission Date: 20120825
  Serious: No
  Sender: FDA-Public Use
  Company Number: US-ACTELION-A-NJ2012-61506

PATIENT

DRUGS (11)
  1. NEXIUM [Concomitant]
  2. VITAMIN D [Concomitant]
  3. FOSRENOL [Concomitant]
  4. SERTRALINE HYDROCHLORIDE [Concomitant]
  5. HYDRALAZINE HCL [Concomitant]
  6. VENTOLIN [Concomitant]
  7. CRESTOR [Concomitant]
  8. TRACLEER [Suspect]
     Indication: PULMONARY ARTERIAL HYPERTENSION
     Dosage: 125 MG, BID
     Route: 048
     Dates: start: 20110729
  9. CLONIDINE HCL [Concomitant]
  10. RENVELA [Concomitant]
  11. NORVASC [Concomitant]

REACTIONS (1)
  - ARTERIOVENOUS FISTULA ANEURYSM [None]
